FAERS Safety Report 23439796 (Version 1)
Quarter: 2024Q1

REPORT INFORMATION
  Report Type: Spontaneous
  Country: BR (occurrence: BR)
  Receive Date: 20240124
  Receipt Date: 20240124
  Transmission Date: 20240410
  Serious: Yes (Death, Hospitalization, Other)
  Sender: FDA-Public Use
  Company Number: BR-AMGEN-BRASP2024010673

PATIENT
  Age: 36 Year
  Sex: Female

DRUGS (1)
  1. INFLIXIMAB [Suspect]
     Active Substance: INFLIXIMAB
     Indication: Colitis ulcerative
     Dosage: 5 MILLIGRAM/KILOGRAM
     Route: 065

REACTIONS (8)
  - Multiple organ dysfunction syndrome [Fatal]
  - Pelvic venous thrombosis [Unknown]
  - Gangrene [Unknown]
  - Colitis [Unknown]
  - Lower gastrointestinal haemorrhage [Unknown]
  - Retroperitoneal haematoma [Unknown]
  - Haemoperitoneum [Unknown]
  - Infection [Unknown]
